FAERS Safety Report 9562648 (Version 4)
Quarter: 2014Q2

REPORT INFORMATION
  Report Type: Report from Study
  Country: US (occurrence: US)
  Receive Date: 20130927
  Receipt Date: 20140401
  Transmission Date: 20141212
  Serious: Yes (Other)
  Sender: FDA-Public Use
  Company Number: US-US-EMD SERONO, INC.-7239524

PATIENT
  Age: 76 Year
  Sex: Female
  Weight: 57 kg

DRUGS (3)
  1. REBIF [Suspect]
     Indication: MULTIPLE SCLEROSIS
     Route: 058
     Dates: start: 20100628, end: 20131102
  2. REBIF [Suspect]
     Route: 058
     Dates: start: 201312
  3. BOTOX [Concomitant]
     Indication: MUSCLE DISORDER

REACTIONS (5)
  - Arthritis climacteric [Recovering/Resolving]
  - Hypertonic bladder [Not Recovered/Not Resolved]
  - Fall [Unknown]
  - Muscle spasms [Unknown]
  - Pain [Unknown]
